FAERS Safety Report 15396509 (Version 1)
Quarter: 2018Q3

REPORT INFORMATION
  Report Type: Spontaneous
  Country: FR (occurrence: FR)
  Receive Date: 20180918
  Receipt Date: 20180918
  Transmission Date: 20181010
  Serious: Yes (Other)
  Sender: FDA-Public Use
  Company Number: FR-PFIZER INC-2018368095

PATIENT
  Age: 17 Year
  Sex: Female

DRUGS (1)
  1. ALPRAZOLAM. [Suspect]
     Active Substance: ALPRAZOLAM
     Indication: CHEMICAL SUBMISSION
     Dosage: 1 DF, AS NEEDED
     Route: 048
     Dates: start: 201612, end: 20170213

REACTIONS (3)
  - Victim of chemical submission [Recovered/Resolved]
  - Drug administered to patient of inappropriate age [Recovered/Resolved]
  - Product use in unapproved indication [Recovered/Resolved]

NARRATIVE: CASE EVENT DATE: 201612
